FAERS Safety Report 10703536 (Version 2)
Quarter: 2015Q1

REPORT INFORMATION
  Report Type: Spontaneous
  Country: FR (occurrence: FR)
  Receive Date: 20150112
  Receipt Date: 20150227
  Transmission Date: 20150721
  Serious: Yes (Other)
  Sender: FDA-Public Use
  Company Number: FR-ROCHE-1518740

PATIENT
  Sex: Female

DRUGS (4)
  1. DAFALGAN [Concomitant]
     Active Substance: ACETAMINOPHEN
     Route: 065
  2. ROACTEMRA [Suspect]
     Active Substance: TOCILIZUMAB
     Indication: RHEUMATOID ARTHRITIS
     Dosage: RECIEVED HER ELEVENTH COURSE OF TOCILIZUMAB ON 20/FEB/2015
     Route: 041
     Dates: start: 20141121, end: 20141121
  3. XANAX [Concomitant]
     Active Substance: ALPRAZOLAM
  4. HEXAQUINE [Concomitant]
     Active Substance: NIAOULI OIL\QUININE BENZOATE\THIAMINE HYDROCHLORIDE

REACTIONS (2)
  - Leukopenia [Recovered/Resolved]
  - Neutropenia [Recovered/Resolved]
